FAERS Safety Report 18534291 (Version 1)
Quarter: 2020Q4

REPORT INFORMATION
  Report Type: Spontaneous
  Country: US (occurrence: US)
  Receive Date: 20201123
  Receipt Date: 20201123
  Transmission Date: 20210114
  Serious: Yes (Hospitalization)
  Sender: FDA-Public Use
  Company Number: None

PATIENT
  Age: 80 Year
  Sex: Female

DRUGS (8)
  1. REPATHA [Concomitant]
     Active Substance: EVOLOCUMAB
     Dates: start: 20201013
  2. PREDNISONE. [Concomitant]
     Active Substance: PREDNISONE
     Dates: start: 20200713
  3. REPATHA [Suspect]
     Active Substance: EVOLOCUMAB
     Dosage: ?          OTHER FREQUENCY:EVERY 2 WEEKS;?
     Route: 058
  4. METOPROLOL. [Concomitant]
     Active Substance: METOPROLOL
     Dates: start: 20200411
  5. FLUTICASON [Concomitant]
     Active Substance: FLUTICASONE
     Dates: start: 20201026
  6. TRAZODONE [Concomitant]
     Active Substance: TRAZODONE HYDROCHLORIDE
     Dates: start: 20200619
  7. VENLAFAXINE [Concomitant]
     Active Substance: VENLAFAXINE HYDROCHLORIDE
     Dates: start: 20200709
  8. PRADAXA [Concomitant]
     Active Substance: DABIGATRAN ETEXILATE MESYLATE
     Dates: start: 20200909

REACTIONS (5)
  - Vomiting [None]
  - Dizziness [None]
  - Drug hypersensitivity [None]
  - Nausea [None]
  - Lip swelling [None]

NARRATIVE: CASE EVENT DATE: 20201120
